FAERS Safety Report 20359439 (Version 2)
Quarter: 2022Q4

REPORT INFORMATION
  Report Type: Spontaneous
  Country: US (occurrence: US)
  Receive Date: 20220121
  Receipt Date: 20221118
  Transmission Date: 20230113
  Serious: Yes (Other)
  Sender: FDA-Public Use
  Company Number: US-GILEAD-2022-0565923

PATIENT
  Age: 37 Year
  Sex: Female
  Weight: 85.714 kg

DRUGS (64)
  1. COMPLERA [Suspect]
     Active Substance: EMTRICITABINE\RILPIVIRINE HYDROCHLORIDE\TENOFOVIR DISOPROXIL FUMARATE
     Indication: HIV infection
     Dosage: UNK
     Route: 048
     Dates: start: 2005
  2. COMPLERA [Suspect]
     Active Substance: EMTRICITABINE\RILPIVIRINE HYDROCHLORIDE\TENOFOVIR DISOPROXIL FUMARATE
     Dosage: UNK
     Route: 048
     Dates: start: 201202, end: 201806
  3. ATRIPLA [Suspect]
     Active Substance: EFAVIRENZ\EMTRICITABINE\TENOFOVIR DISOPROXIL FUMARATE
     Indication: HIV infection
     Dosage: UNK
     Route: 048
     Dates: start: 2005
  4. ATRIPLA [Suspect]
     Active Substance: EFAVIRENZ\EMTRICITABINE\TENOFOVIR DISOPROXIL FUMARATE
     Dosage: UNK
     Route: 048
     Dates: start: 2008, end: 201201
  5. TRUVADA [Suspect]
     Active Substance: EMTRICITABINE\TENOFOVIR DISOPROXIL FUMARATE
     Indication: HIV infection
     Dosage: UNK
     Route: 048
     Dates: start: 2005, end: 2008
  6. BIKTARVY [Concomitant]
     Active Substance: BICTEGRAVIR SODIUM\EMTRICITABINE\TENOFOVIR ALAFENAMIDE FUMARATE
  7. ODEFSEY [Concomitant]
     Active Substance: EMTRICITABINE\RILPIVIRINE HYDROCHLORIDE\TENOFOVIR ALAFENAMIDE FUMARATE
  8. SUSTIVA [Concomitant]
     Active Substance: EFAVIRENZ
  9. ACYCLOVIR [Concomitant]
     Active Substance: ACYCLOVIR
  10. ALPRAZOLAM [Concomitant]
     Active Substance: ALPRAZOLAM
  11. AMLODIPINE BESYLATE [Concomitant]
     Active Substance: AMLODIPINE BESYLATE
  12. ARIPIPRAZOLE [Concomitant]
     Active Substance: ARIPIPRAZOLE
  13. ASPIRIN [Concomitant]
     Active Substance: ASPIRIN
  14. ATORVASTATIN [Concomitant]
     Active Substance: ATORVASTATIN
  15. AZELASTINE HYDROCHLORIDE [Concomitant]
     Active Substance: AZELASTINE HYDROCHLORIDE
  16. BACLOFEN [Concomitant]
     Active Substance: BACLOFEN
  17. BENZONATATE [Concomitant]
     Active Substance: BENZONATATE
  18. BUPROPION [Concomitant]
     Active Substance: BUPROPION
  19. CELECOXIB [Concomitant]
     Active Substance: CELECOXIB
  20. CHANTIX [Concomitant]
     Active Substance: VARENICLINE TARTRATE
  21. CLONAZEPAM [Concomitant]
     Active Substance: CLONAZEPAM
  22. CYCLOBENZAPRINE [Concomitant]
     Active Substance: CYCLOBENZAPRINE
  23. DICLOFENAC [Concomitant]
     Active Substance: DICLOFENAC
  24. DOCUSATE [Concomitant]
     Active Substance: DOCUSATE
  25. ENALAPRIL MALEATE AND HCTZ [Concomitant]
  26. ENDOCET [Concomitant]
     Active Substance: ACETAMINOPHEN\OXYCODONE HYDROCHLORIDE
  27. FAMOTIDINE [Concomitant]
     Active Substance: FAMOTIDINE
  28. FERROUS SULFATE [Concomitant]
     Active Substance: FERROUS SULFATE
  29. FLUOCINONIDE [Concomitant]
     Active Substance: FLUOCINONIDE
  30. GABAPENTIN [Concomitant]
     Active Substance: GABAPENTIN
  31. HYDROCHLOROTHIAZIDE [Concomitant]
     Active Substance: HYDROCHLOROTHIAZIDE
  32. HYDROXYZINE [Concomitant]
     Active Substance: HYDROXYZINE HYDROCHLORIDE
  33. IBUPROFEN [Concomitant]
     Active Substance: IBUPROFEN
  34. KETOROLAC TROMETHAMINE [Concomitant]
     Active Substance: KETOROLAC TROMETHAMINE
  35. KETOTIFEN [Concomitant]
     Active Substance: KETOTIFEN
  36. LACTULOSE [Concomitant]
     Active Substance: LACTULOSE
  37. LAMOTRIGINE [Concomitant]
     Active Substance: LAMOTRIGINE
  38. LIDOCAINE [Concomitant]
     Active Substance: LIDOCAINE
  39. LORATADINE [Concomitant]
     Active Substance: LORATADINE
  40. LOSARTAN AND HYDROCHLOROTHIAZIDE [Concomitant]
     Active Substance: HYDROCHLOROTHIAZIDE\LOSARTAN POTASSIUM
  41. MEGESTROL [Concomitant]
     Active Substance: MEGESTROL
  42. MELATONIN [Concomitant]
     Active Substance: MELATONIN
  43. METHOCARBAMOL [Concomitant]
     Active Substance: METHOCARBAMOL
  44. METRONIDAZOLE [Concomitant]
     Active Substance: METRONIDAZOLE
  45. OXYCODONE [Concomitant]
     Active Substance: OXYCODONE
  46. CALCIUM [Concomitant]
     Active Substance: CALCIUM
  47. PIROXICAM [Concomitant]
     Active Substance: PIROXICAM
  48. PRAVASTATIN [Concomitant]
     Active Substance: PRAVASTATIN
  49. PRAZOSIN [Concomitant]
     Active Substance: PRAZOSIN
  50. PROMETHAZINE HYDROCHLORIDE [Concomitant]
     Active Substance: PROMETHAZINE HYDROCHLORIDE
  51. QUETIAPINE FUMARATE [Concomitant]
     Active Substance: QUETIAPINE FUMARATE
  52. RANITIDINE [Concomitant]
     Active Substance: RANITIDINE
  53. SENEXON E [Concomitant]
  54. SERTRALINE [Concomitant]
     Active Substance: SERTRALINE HYDROCHLORIDE
  55. SISTUSIN [Concomitant]
  56. SIMETHICONE (DIMETHICONE) [Concomitant]
     Active Substance: DIMETHICONE
  57. SIMVASTATIN [Concomitant]
     Active Substance: SIMVASTATIN
  58. SUDOGEST [Concomitant]
     Active Substance: PSEUDOEPHEDRINE HYDROCHLORIDE
  59. TAB A VITE [Concomitant]
  60. TIZANIDINE HYDROCHLORIDE [Concomitant]
     Active Substance: TIZANIDINE HYDROCHLORIDE
  61. TRAZODONE [Concomitant]
     Active Substance: TRAZODONE HYDROCHLORIDE
  62. TRIAMCINOLONE [Concomitant]
     Active Substance: TRIAMCINOLONE
  63. ZOLPIDEM [Concomitant]
     Active Substance: ZOLPIDEM TARTRATE
  64. ZOVIRAX ACTIVE [Concomitant]

REACTIONS (14)
  - Osteoporosis [Unknown]
  - Bone demineralisation [Not Recovered/Not Resolved]
  - Foot fracture [Unknown]
  - Hand fracture [Unknown]
  - Ankle fracture [Not Recovered/Not Resolved]
  - Pain [Not Recovered/Not Resolved]
  - Emotional distress [Not Recovered/Not Resolved]
  - Anxiety [Not Recovered/Not Resolved]
  - Anhedonia [Not Recovered/Not Resolved]
  - Arthralgia [Not Recovered/Not Resolved]
  - Osteoarthritis [Unknown]
  - Gait disturbance [Not Recovered/Not Resolved]
  - Bone disorder [Unknown]
  - Depression [Unknown]

NARRATIVE: CASE EVENT DATE: 20070801
